FAERS Safety Report 11043736 (Version 2)
Quarter: 2015Q2

REPORT INFORMATION
  Report Type: Spontaneous
  Country: US (occurrence: US)
  Receive Date: 20150417
  Receipt Date: 20150601
  Transmission Date: 20150821
  Serious: Yes (Death, Other)
  Sender: FDA-Public Use
  Company Number: US-BEH-2015050390

PATIENT
  Age: 59 Year
  Sex: Male

DRUGS (8)
  1. INTERFERON ALPHA-2B [Suspect]
     Active Substance: INTERFERON ALFA-2B
     Dosage: ON DAYS 33, 34, AND 35 POSTTRANSPLANTATION
     Route: 058
  2. MYCOPHENOLATE [Concomitant]
     Active Substance: MYCOPHENOLIC ACID
  3. INTERFERON ALPHA-2B [Suspect]
     Active Substance: INTERFERON ALFA-2B
     Dosage: ON DAY 20
     Route: 058
  4. CORTICOSTEROIDS [Concomitant]
     Active Substance: CORTICOSTEROID NOS
  5. TACROLIMUS. [Concomitant]
     Active Substance: TACROLIMUS
  6. BASILIXIMAB [Concomitant]
     Active Substance: BASILIXIMAB
  7. PRIVIGEN [Suspect]
     Active Substance: HUMAN IMMUNOGLOBULIN G
     Indication: WEST NILE VIRUS TEST POSITIVE
     Dosage: ON DAYS 20, 22, 23, 25, 26, AND 31 POSTTRANSPLANTATION
     Route: 042
  8. INTERFERON ALPHA-2B [Suspect]
     Active Substance: INTERFERON ALFA-2B
     Dosage: ON DAYS 21, 22, 23, 31, AND 32 POSTTRANSPLANTATION.
     Route: 058

REACTIONS (2)
  - Drug ineffective for unapproved indication [Fatal]
  - West Nile viral infection [Fatal]
